FAERS Safety Report 13410576 (Version 5)
Quarter: 2022Q3

REPORT INFORMATION
  Report Type: Spontaneous
  Country: US (occurrence: US)
  Receive Date: 20170406
  Receipt Date: 20220805
  Transmission Date: 20221027
  Serious: No
  Sender: FDA-Public Use
  Company Number: US-JNJFOC-20170300271

PATIENT
  Sex: Male

DRUGS (5)
  1. RISPERDAL [Suspect]
     Active Substance: RISPERIDONE
     Indication: Bipolar disorder
     Dosage: 0.25 MG AND 1 MG
     Route: 048
     Dates: start: 20000817
  2. RISPERDAL [Suspect]
     Active Substance: RISPERIDONE
     Indication: Behaviour disorder
     Dosage: 0.25 MG AND 1 MG
     Route: 048
     Dates: start: 20030417, end: 20051111
  3. RISPERDAL [Suspect]
     Active Substance: RISPERIDONE
     Indication: Aggression
     Dosage: 0.25 MG AND 1 MG
     Route: 048
     Dates: end: 200603
  4. RISPERDAL [Suspect]
     Active Substance: RISPERIDONE
     Dosage: 0.25 MG AND 1 MG
     Route: 048
     Dates: start: 20060523, end: 20060608
  5. RISPERDAL [Suspect]
     Active Substance: RISPERIDONE
     Dosage: 0.25 MG AND 1 MG
     Route: 048
     Dates: start: 20070612, end: 200808

REACTIONS (3)
  - Emotional distress [Unknown]
  - Gynaecomastia [Unknown]
  - Drug ineffective [Unknown]
